FAERS Safety Report 21651567 (Version 1)
Quarter: 2022Q4

REPORT INFORMATION
  Report Type: Spontaneous
  Country: US (occurrence: None)
  Receive Date: 20221127
  Receipt Date: 20221127
  Transmission Date: 20230113
  Serious: Yes (Other)
  Sender: FDA-Public Use
  Company Number: None

PATIENT
  Age: 57 Year
  Sex: Female
  Weight: 53.55 kg

DRUGS (2)
  1. NITROFURANTOIN [Suspect]
     Active Substance: NITROFURANTOIN
     Indication: Urinary tract infection
     Dosage: OTHER QUANTITY : 14 CAPSULE(S);?FREQUENCY : TWICE A DAY;?
     Route: 048
     Dates: start: 20221119, end: 20221123
  2. GABAPENTIN [Concomitant]
     Active Substance: GABAPENTIN

REACTIONS (26)
  - Agitation [None]
  - Irritability [None]
  - Migraine [None]
  - Vomiting [None]
  - Feeling abnormal [None]
  - Neck pain [None]
  - Nausea [None]
  - Unevaluable event [None]
  - Rash erythematous [None]
  - Speech disorder [None]
  - Paraesthesia [None]
  - Fatigue [None]
  - Asthenia [None]
  - Myalgia [None]
  - Palpitations [None]
  - Gait disturbance [None]
  - Renal pain [None]
  - Urethral disorder [None]
  - Hypersomnia [None]
  - Chest pain [None]
  - Dyspnoea [None]
  - Cough [None]
  - Dyskinesia [None]
  - Pain in extremity [None]
  - Tremor [None]
  - Product complaint [None]

NARRATIVE: CASE EVENT DATE: 20221124
